FAERS Safety Report 7878983-7 (Version None)
Quarter: 2011Q4

REPORT INFORMATION
  Report Type: 
  Country: None (occurrence: None)
  Receive Date: 20111101
  Receipt Date: 20111018
  Transmission Date: 20120403
  Serious: Yes (Other)
  Sender: FDA-Public Use
  Company Number: PHEH2011US05684

PATIENT
  Age: 83 Year
  Sex: Female
  Weight: 187 kg

DRUGS (1)
  1. RECLAST [Suspect]
     Indication: OSTEOPOROSIS
     Dosage: 5 MG, UNK
     Route: 042
     Dates: start: 20110914

REACTIONS (6)
  - EYE OEDEMA [None]
  - BLINDNESS [None]
  - RENAL IMPAIRMENT [None]
  - TEMPORAL ARTERITIS [None]
  - EYE PAIN [None]
  - HEADACHE [None]
